FAERS Safety Report 7820349 (Version 3)
Quarter: 2013Q1

REPORT INFORMATION
  Report Type: Spontaneous
  Country: US (occurrence: US)
  Receive Date: 20110221
  Receipt Date: 20130304
  Transmission Date: 20140127
  Serious: Yes (Hospitalization, Other)
  Sender: FDA-Public Use
  Company Number: PHHY2011US10256

PATIENT
  Sex: Male

DRUGS (1)
  1. GLEEVEC [Suspect]
     Indication: ACUTE MYELOID LEUKAEMIA (IN REMISSION)
     Dosage: 400 MG, QD
     Route: 048
     Dates: start: 201101

REACTIONS (8)
  - Renal disorder [Unknown]
  - Bladder disorder [Unknown]
  - Peripheral arterial occlusive disease [Unknown]
  - Graft versus host disease [Unknown]
  - Bladder cancer [Unknown]
  - Urethral cancer [Unknown]
  - Prostate cancer [Unknown]
  - Second primary malignancy [Unknown]
